FAERS Safety Report 6637663-6 (Version None)
Quarter: 2010Q1

REPORT INFORMATION
  Report Type: 
  Country: None (occurrence: None)
  Receive Date: 20100317
  Receipt Date: 20100309
  Transmission Date: 20100710
  Serious: Yes (Hospitalization)
  Sender: FDA-Public Use
  Company Number: IT-TYCO HEALTHCARE/MALLINCKRODT-T201000781

PATIENT
  Sex: Female

DRUGS (8)
  1. OPTIRAY 350 [Suspect]
     Indication: AORTOGRAM
     Dosage: 100 ML, SINGLE
     Route: 013
     Dates: start: 20080121, end: 20080121
  2. LANSOPRAZOL A [Concomitant]
  3. ENAPREN [Concomitant]
     Dosage: 20 MG, UNK
  4. ASPIRIN [Concomitant]
  5. INDERAL                            /00030001/ [Concomitant]
     Dosage: 40 MG, UNK
  6. MOTILEX                            /00034001/ [Concomitant]
     Dosage: 0.5 MG, UNK
  7. MODURETIC 5-50 [Concomitant]
  8. TAVOR                              /00273201/ [Concomitant]

REACTIONS (2)
  - INFUSION SITE RASH [None]
  - RASH GENERALISED [None]
